FAERS Safety Report 9672557 (Version 7)
Quarter: 2014Q1

REPORT INFORMATION
  Report Type: Report from Study
  Country: JP (occurrence: JP)
  Receive Date: 20131106
  Receipt Date: 20140124
  Transmission Date: 20141002
  Serious: Yes (Hospitalization, Other)
  Sender: FDA-Public Use
  Company Number: JP-MERCK-1307JPN004966

PATIENT
  Age: 66 Year
  Sex: Female
  Weight: 48.8 kg

DRUGS (27)
  1. VORINOSTAT [Suspect]
     Indication: B-CELL LYMPHOMA
     Dosage: 200 MG TWICE DAILY (400 MG/DAY) ON DAYS 1-14, FOLLOWED BY 7 DAY-DRUG HOLIDAYS, CYCLE 1-7
     Route: 048
     Dates: start: 20090716, end: 20091202
  2. VORINOSTAT [Suspect]
     Dosage: 200 MG TWICE DAILY (400 MG/DAY) ON DAYS 1-14, FOLLOWED BY 7 DAY-DRUG HOLIDAYS, CYCLE 8
     Route: 048
     Dates: start: 20091212, end: 20091225
  3. VORINOSTAT [Suspect]
     Dosage: 200 MG TWICE DAILY (400 MG/DAY) ON DAYS 1-14, FOLLOWED BY 7 DAY-DRUG HOLIDAYS, CYCLE 9
     Route: 048
     Dates: start: 20100105, end: 20100118
  4. VORINOSTAT [Suspect]
     Dosage: 200 MG TWICE DAILY (400 MG/DAY) ON DAYS 1-14, FOLLOWED BY 7 DAY-DRUG HOLIDAYS, CYCLE 10-19
     Route: 048
     Dates: start: 20100126, end: 20100818
  5. VORINOSTAT [Suspect]
     Dosage: 200 MG TWICE DAILY (400 MG/DAY) ON DAYS 1-14, FOLLOWED BY 7 DAY-DRUG HOLIDAYS, CYCLE 20
     Route: 048
     Dates: start: 20100901, end: 20100914
  6. VORINOSTAT [Suspect]
     Dosage: 200 MG TWICE DAILY (400 MG/DAY) ON DAYS 1-14, FOLLOWED BY 7 DAY-DRUG HOLIDAYS, CYCLE 21
     Route: 048
     Dates: start: 20100923, end: 20101006
  7. VORINOSTAT [Suspect]
     Dosage: 200 MG TWICE DAILY (400 MG/DAY) ON DAYS 1-14, FOLLOWED BY 7 DAY-DRUG HOLIDAYS, CYCLE 22
     Route: 048
     Dates: start: 20101020, end: 20101101
  8. VORINOSTAT [Suspect]
     Dosage: 200 MG TWICE DAILY (400 MG/DAY) ON DAYS 1-14, FOLLOWED BY 7 DAY-DRUG HOLIDAYS, CYCLE 23-24
     Route: 048
     Dates: start: 20101111, end: 20101215
  9. VORINOSTAT [Suspect]
     Dosage: 200 MG TWICE DAILY (400 MG/DAY) ON DAYS 1-14, FOLLOWED BY 7 DAY-DRUG HOLIDAYS, CYCLE 25
     Route: 048
     Dates: start: 20101229, end: 20110111
  10. VORINOSTAT [Suspect]
     Dosage: 100 MG AND 200 MG PER DAY  ON DAYS 1-14, FOLLOWED BY 7 DAY-DRUG HOLIDAYS, CYCLE 26
     Route: 048
     Dates: start: 20110125, end: 20110207
  11. VORINOSTAT [Suspect]
     Dosage: 200 MG TWICE DAILY (400 MG/DAY) ON DAYS 1-14, FOLLOWED BY 7 DAY-DRUG HOLIDAYS, CYCLE 27
     Route: 048
     Dates: start: 20110221, end: 20110306
  12. VORINOSTAT [Suspect]
     Dosage: 200 MG TWICE DAILY (400 MG/DAY) ON DAYS 1-14, FOLLOWED BY 7 DAY-DRUG HOLIDAYS, CYCLE 28
     Route: 048
     Dates: start: 20110320, end: 20110402
  13. VORINOSTAT [Suspect]
     Dosage: 200 MG TWICE DAILY (400 MG/DAY) ON DAYS 1-14, FOLLOWED BY 7 DAY-DRUG HOLIDAYS, CYCLE 29
     Route: 048
     Dates: start: 20110416, end: 20110429
  14. VORINOSTAT [Suspect]
     Dosage: 200 MG TWICE DAILY (400 MG/DAY) ON DAYS 1-14, FOLLOWED BY 7 DAY-DRUG HOLIDAYS, CYCLE 30
     Route: 048
     Dates: start: 20110513, end: 20110526
  15. VORINOSTAT [Suspect]
     Dosage: 200 MG TWICE DAILY (400 MG/DAY) ON DAYS 1-14, FOLLOWED BY 7 DAY-DRUG HOLIDAYS, CYCLE 31
     Route: 048
     Dates: start: 20110608, end: 20110621
  16. VORINOSTAT [Suspect]
     Dosage: 200 MG TWICE DAILY (400 MG/DAY) ON DAYS 1-14, FOLLOWED BY 7 DAY-DRUG HOLIDAYS, CYCLE 32
     Route: 048
     Dates: start: 20110705, end: 20110718
  17. VORINOSTAT [Suspect]
     Dosage: 200 MG TWICE DAILY (400 MG/DAY) ON DAYS 1-14, FOLLOWED BY 7 DAY-DRUG HOLIDAYS, CYCLE 33
     Route: 048
     Dates: start: 20110801, end: 20110814
  18. VORINOSTAT [Suspect]
     Dosage: 200 MG TWICE DAILY (400 MG/DAY) ON DAYS 1-14, FOLLOWED BY 7 DAY-DRUG HOLIDAYS, CYCLE 34
     Route: 048
     Dates: start: 20110828, end: 20110910
  19. VORINOSTAT [Suspect]
     Dosage: 200 MG TWICE DAILY (400 MG/DAY) ON DAYS 1-14, FOLLOWED BY 7 DAY-DRUG HOLIDAYS, CYCLE 35-46
     Route: 048
     Dates: start: 20110917, end: 20120518
  20. VORINOSTAT [Suspect]
     Dosage: 100 MG AND 200 MG PER DAY ON DAYS 1-14, FOLLOWED BY 7 DAY-DRUG HOLIDAYS, CYCLE 47-70
     Route: 048
     Dates: start: 20120526, end: 20131012
  21. DIGOSIN [Concomitant]
     Indication: ATRIAL FIBRILLATION
     Dosage: 0.13 MG, QD
     Route: 048
     Dates: start: 200806
  22. DIART [Concomitant]
     Indication: ATRIAL FIBRILLATION
     Dosage: 30 MG, QD
     Route: 048
     Dates: start: 200806
  23. BAYASPIRIN [Concomitant]
     Indication: ATRIAL FIBRILLATION
     Dosage: 100 MG, QD
     Dates: start: 200806, end: 20130627
  24. ISODINE [Concomitant]
     Indication: INFECTION PROPHYLAXIS
     Dosage: AS NEEDED (ROUTE REPORTED AS GARGLE)
     Dates: start: 20040608
  25. NITROL (ISOSORBIDE DINITRATE) [Concomitant]
     Dosage: UNK
     Dates: start: 20130617, end: 20130617
  26. LAC-B [Concomitant]
     Dosage: UNK
     Dates: start: 20130605, end: 20130625
  27. CRAVIT [Concomitant]
     Indication: CHOLECYSTITIS ACUTE
     Dosage: 500 MG, QD
     Route: 048
     Dates: start: 20131016, end: 20131021

REACTIONS (3)
  - Gallbladder cancer [Recovered/Resolved]
  - Bile duct stone [Recovered/Resolved]
  - Cholecystitis acute [Recovered/Resolved]
